APPROVED DRUG PRODUCT: ANTHELIOS 20
Active Ingredient: AVOBENZONE; ECAMSULE; OCTOCRYLENE; TITANIUM DIOXIDE
Strength: 2%;2%;10%;2%
Dosage Form/Route: CREAM;TOPICAL
Application: N021471 | Product #001
Applicant: LOREAL USA PRODUCTS INC
Approved: Oct 5, 2006 | RLD: Yes | RS: Yes | Type: OTC